FAERS Safety Report 9896791 (Version 1)
Quarter: 2014Q1

REPORT INFORMATION
  Report Type: Spontaneous
  Country: US (occurrence: US)
  Receive Date: 20140213
  Receipt Date: 20140213
  Transmission Date: 20141002
  Serious: No
  Sender: FDA-Public Use
  Company Number: US-BRISTOL-MYERS SQUIBB COMPANY-19200179

PATIENT
  Age: 55 Year
  Sex: Female
  Weight: 54.42 kg

DRUGS (5)
  1. ABATACEPT SUBQ INJECTION 125MG/ML [Suspect]
     Route: 058
  2. FOLIC ACID [Concomitant]
  3. VITAMIN D [Concomitant]
  4. IRON [Concomitant]
  5. METHOTREXATE [Concomitant]
     Dosage: (8 PILLS)

REACTIONS (1)
  - Drug dose omission [Unknown]
